FAERS Safety Report 16084139 (Version 2)
Quarter: 2019Q2

REPORT INFORMATION
  Report Type: Spontaneous
  Country: US (occurrence: US)
  Receive Date: 20190318
  Receipt Date: 20190628
  Transmission Date: 20190711
  Serious: No
  Sender: FDA-Public Use
  Company Number: US-PFIZER INC-2019111763

PATIENT
  Age: 62 Year
  Sex: Female

DRUGS (3)
  1. XELJANZ [Suspect]
     Active Substance: TOFACITINIB CITRATE
     Indication: RHEUMATOID ARTHRITIS
     Dosage: 5 MG, 2X/DAY
     Route: 048
     Dates: start: 201812
  2. XELJANZ [Suspect]
     Active Substance: TOFACITINIB CITRATE
     Dosage: 5 MG, 1X/DAY
     Dates: start: 201902
  3. RAYOS [Concomitant]
     Active Substance: PREDNISONE
     Dosage: UNK
     Dates: start: 20181219

REACTIONS (5)
  - Hypoaesthesia [Recovered/Resolved]
  - Pollakiuria [Recovered/Resolved]
  - Headache [Not Recovered/Not Resolved]
  - White blood cell count increased [Recovered/Resolved]
  - Paraesthesia [Recovered/Resolved]
